FAERS Safety Report 6163923-1 (Version None)
Quarter: 2009Q2

REPORT INFORMATION
  Report Type: 
  Country: None (occurrence: None)
  Receive Date: 20090422
  Receipt Date: 20090414
  Transmission Date: 20091009
  Serious: Yes (Hospitalization)
  Sender: FDA-Public Use
  Company Number: PHHY2009FR06947

PATIENT
  Sex: Female
  Weight: 74 kg

DRUGS (5)
  1. ACLASTA [Suspect]
     Indication: OSTEOPOROSIS POSTMENOPAUSAL
     Dosage: 5 MG, ONCE/SINGLE
     Route: 042
     Dates: start: 20090221
  2. LEVOTHYROX [Concomitant]
     Dosage: 125 UG PER DAY
  3. NITRENDIPINE [Concomitant]
     Dosage: 1 PER DAY
  4. HYZAAR [Concomitant]
     Dosage: 1 PER DAY
  5. ZOLPIDEM TARTRATE [Concomitant]
     Dosage: 1 PER DAY

REACTIONS (4)
  - ANXIETY [None]
  - CONFUSIONAL STATE [None]
  - NAUSEA [None]
  - PYREXIA [None]
